FAERS Safety Report 23050381 (Version 1)
Quarter: 2023Q4

REPORT INFORMATION
  Report Type: Spontaneous
  Country: US (occurrence: US)
  Receive Date: 20231010
  Receipt Date: 20231010
  Transmission Date: 20240110
  Serious: Yes (Other)
  Sender: FDA-Public Use
  Company Number: US-PFIZER INC-PV202300167997

PATIENT
  Age: 66 Year
  Sex: Female

DRUGS (1)
  1. IBRANCE [Suspect]
     Active Substance: PALBOCICLIB
     Dosage: 1 TABLET (100 MG TOTAL) ONCE A DAY FOR 21 DAYS FOLLOWED BY 7 DAYS OFF. REPEAT EVERY 28 DAYS
     Route: 048

REACTIONS (1)
  - Neutropenia [Unknown]
